FAERS Safety Report 10050785 (Version 1)
Quarter: 2014Q2

REPORT INFORMATION
  Report Type: Spontaneous
  Country: US (occurrence: US)
  Receive Date: 20140401
  Receipt Date: 20140401
  Transmission Date: 20141212
  Serious: No
  Sender: FDA-Public Use
  Company Number: US-ASTRAZENECA-2013SE67397

PATIENT
  Age: 45 Year
  Sex: Male
  Weight: 78 kg

DRUGS (2)
  1. NEXIUM [Suspect]
     Indication: GASTROOESOPHAGEAL REFLUX DISEASE
     Dosage: DOSAGE UNKNOWN TWO TIMES A DAY
     Route: 048
     Dates: start: 20130828, end: 20130903
  2. PROTONIX [Concomitant]

REACTIONS (5)
  - Mouth swelling [Recovering/Resolving]
  - Tongue blistering [Unknown]
  - Swollen tongue [Unknown]
  - Oral mucosal blistering [Recovering/Resolving]
  - Intentional product misuse [Unknown]
